FAERS Safety Report 10369476 (Version 1)
Quarter: 2014Q3

REPORT INFORMATION
  Report Type: Spontaneous
  Country: DK (occurrence: FR)
  Receive Date: 20140807
  Receipt Date: 20140807
  Transmission Date: 20150326
  Serious: Yes (Life-Threatening)
  Sender: FDA-Public Use
  Company Number: FR-FRI-1000069719

PATIENT
  Age: 84 Year
  Sex: Female

DRUGS (3)
  1. RENITEC [Concomitant]
     Active Substance: ENALAPRIL MALEATE
  2. ESCITALOPRAM [Suspect]
     Active Substance: ESCITALOPRAM OXALATE
     Indication: DEPRESSION
     Dosage: 10 MG
     Route: 048
     Dates: start: 201312, end: 20140109
  3. DAFALGAN [Concomitant]
     Active Substance: ACETAMINOPHEN

REACTIONS (1)
  - Toxic encephalopathy [Recovering/Resolving]

NARRATIVE: CASE EVENT DATE: 201312
